FAERS Safety Report 8648917 (Version 4)
Quarter: 2012Q4

REPORT INFORMATION
  Report Type: 
  Country: JP (occurrence: JP)
  Receive Date: 20120704
  Receipt Date: 20121228
  Transmission Date: 20130627
  Serious: Yes (Life-Threatening, Hospitalization)
  Sender: FDA-Public Use
  Company Number: JP-SHIRE-ALL1-2012-03179

PATIENT
  Age: 55 Year
  Sex: Male

DRUGS (10)
  1. FOSRENOL [Suspect]
     Indication: HYPERPHOSPHATAEMIA
     Dosage: 2250 mg, Unknown
     Route: 048
     Dates: start: 20110729, end: 20120510
  2. FOSRENOL [Suspect]
     Dosage: 750 mg, Unknown
     Route: 048
     Dates: start: 20090601
  3. FOSRENOL [Suspect]
     Dosage: 750 mg, Unknown
     Route: 048
     Dates: start: 20110611
  4. PRECIPITATED CALCIUM CARBONATE [Concomitant]
     Indication: HYPERPHOSPHATAEMIA
     Dosage: 1500 mg, Unknown
     Route: 048
  5. ALFACALCIDOL [Concomitant]
     Indication: PRODUCT USED FOR UNKNOWN INDICATION
     Dosage: UNK, Unknown
     Route: 048
     Dates: start: 20080804, end: 20120510
  6. TAPIZOL [Concomitant]
     Indication: PRODUCT USED FOR UNKNOWN INDICATION
     Dosage: UNK, Unknown
     Route: 048
     Dates: start: 20090622, end: 20120510
  7. ARTIST [Concomitant]
     Indication: PRODUCT USED FOR UNKNOWN INDICATION
     Dosage: UNK, Unknown
     Route: 048
     Dates: start: 20110121, end: 20120510
  8. CALTAN [Concomitant]
     Indication: HYPERPHOSPHATAEMIA
     Dosage: UNK UNK, Unknown
     Route: 048
     Dates: start: 20080804, end: 20120510
  9. LOXOPROFEN SODIUM [Concomitant]
     Indication: PRODUCT USED FOR UNKNOWN INDICATION
     Dosage: UNK, Unknown
     Route: 048
     Dates: start: 20081027, end: 20120510
  10. MUCOSTA [Concomitant]
     Indication: PRODUCT USED FOR UNKNOWN INDICATION
     Dosage: UNK UNK, Unknown
     Route: 048
     Dates: start: 20100702, end: 20120510

REACTIONS (2)
  - Rectal perforation [Recovered/Resolved]
  - Peritonitis [Recovered/Resolved]
